FAERS Safety Report 9995377 (Version 2)
Quarter: 2014Q2

REPORT INFORMATION
  Report Type: Spontaneous
  Country: US (occurrence: US)
  Receive Date: 20140311
  Receipt Date: 20140421
  Transmission Date: 20141212
  Serious: Yes (Hospitalization, Other)
  Sender: FDA-Public Use
  Company Number: US-BAYER-2014-036389

PATIENT
  Age: 25 Year
  Sex: Female
  Weight: 45.35 kg

DRUGS (4)
  1. MIRENA [Suspect]
     Indication: CONTRACEPTION
     Dosage: 20 MCG/24HR, CONT
     Route: 015
     Dates: start: 20071029, end: 20100127
  2. CENTRUM [Concomitant]
     Route: 048
  3. DOXYCYCLINE [Concomitant]
     Route: 048
  4. NEXIUM [Concomitant]
     Route: 048

REACTIONS (15)
  - Uterine perforation [None]
  - Gastrointestinal injury [None]
  - Device issue [None]
  - Injury [None]
  - Pain [None]
  - Emotional distress [None]
  - Weight decreased [None]
  - Abdominal pain [None]
  - Pelvic pain [None]
  - Anaemia [None]
  - Vomiting [None]
  - Mental disorder [None]
  - Polymenorrhoea [None]
  - Dyspareunia [None]
  - Depression [None]
